FAERS Safety Report 4742814-4 (Version None)
Quarter: 2005Q3

REPORT INFORMATION
  Report Type: 
  Country: None (occurrence: None)
  Receive Date: 20050811
  Receipt Date: 20050810
  Transmission Date: 20060218
  Serious: Yes (Hospitalization)
  Sender: FDA-Public Use
  Company Number: US-GLAXOSMITHKLINE-A0569718A

PATIENT
  Sex: Male

DRUGS (2)
  1. ESKALITH [Suspect]
     Indication: BIPOLAR I DISORDER
     Route: 048
  2. NO CONCURRENT MEDICATION [Concomitant]

REACTIONS (2)
  - DIABETES MELLITUS [None]
  - RENAL DISORDER [None]
